FAERS Safety Report 15944874 (Version 5)
Quarter: 2021Q4

REPORT INFORMATION
  Report Type: Report from Study
  Country: US (occurrence: US)
  Receive Date: 20190211
  Receipt Date: 20211224
  Transmission Date: 20220303
  Serious: Yes (Other)
  Sender: FDA-Public Use
  Company Number: US-ACADIA PHARMACEUTICALS INC.-ACA-2018-011289

PATIENT
  Age: 56 Year
  Sex: Male

DRUGS (2)
  1. NUPLAZID [Suspect]
     Active Substance: PIMAVANSERIN TARTRATE
     Indication: Parkinson^s disease
     Dosage: 34 MG, QD
     Route: 048
     Dates: start: 2018, end: 201812
  2. NUPLAZID [Suspect]
     Active Substance: PIMAVANSERIN TARTRATE
     Dosage: 34 MG, QD
     Route: 048
     Dates: start: 201812

REACTIONS (11)
  - Seizure [Unknown]
  - Pneumonia [Unknown]
  - Gastrointestinal stromal tumour [Unknown]
  - Gastritis erosive [Unknown]
  - Product dose omission issue [Unknown]
  - Skin exfoliation [Unknown]
  - Sleep disorder [Unknown]
  - Depression [Unknown]
  - Hallucination [Unknown]
  - Hallucination, visual [Unknown]
  - Hallucination [Unknown]

NARRATIVE: CASE EVENT DATE: 20181201
